FAERS Safety Report 16892799 (Version 2)
Quarter: 2020Q1

REPORT INFORMATION
  Report Type: Spontaneous
  Country: DE (occurrence: DE)
  Receive Date: 20191007
  Receipt Date: 20200115
  Transmission Date: 20200409
  Serious: Yes (Death, Life-Threatening)
  Sender: FDA-Public Use
  Company Number: DE-ALLERGAN-1940330US

PATIENT
  Sex: Male
  Weight: 88 kg

DRUGS (65)
  1. DOPAMIN (DOPAMINE HYDROCHLORIDE) [Suspect]
     Active Substance: DOPAMINE HYDROCHLORIDE
     Indication: HYPOTENSION
     Dosage: 1.2 ML, UNK
     Route: 042
     Dates: start: 19981119, end: 19990101
  2. URBASON SOLUB [Suspect]
     Active Substance: METHYLPREDNISOLONE SODIUM SUCCINATE
     Indication: GRAFT VERSUS HOST DISEASE
     Dosage: UNK
     Route: 042
     Dates: start: 19981121, end: 19990101
  3. MORPHIN [Concomitant]
     Active Substance: MORPHINE
     Indication: SEDATION
     Dosage: 0.5 MG, UNK
     Route: 042
     Dates: start: 19981111, end: 19981123
  4. ACC [Concomitant]
     Active Substance: ACETYLCYSTEINE
     Indication: UNEVALUABLE EVENT
     Dosage: UNK
     Route: 042
     Dates: start: 19981117, end: 19981119
  5. ACTRAPID [Concomitant]
     Active Substance: INSULIN HUMAN
     Indication: DIABETES MELLITUS
     Dosage: 2 IU, UNK
     Route: 042
     Dates: start: 19981115, end: 19981207
  6. TAVEGIL [Concomitant]
     Active Substance: CLEMASTINE FUMARATE
     Indication: GRAFT VERSUS HOST DISEASE
     Dosage: UNK
     Route: 042
     Dates: start: 19981118, end: 19981121
  7. PREDNISOLONE. [Suspect]
     Active Substance: PREDNISOLONE
     Indication: CONJUNCTIVITIS
     Dosage: UNK
     Route: 061
     Dates: start: 19981204, end: 19981204
  8. REMERGIL [Suspect]
     Active Substance: MIRTAZAPINE
     Dosage: 15 MG, UNK
     Route: 048
     Dates: start: 19981203, end: 19981203
  9. FUROSEMIDE. [Suspect]
     Active Substance: FUROSEMIDE
     Dosage: 10 MG, UNK
     Route: 042
     Dates: start: 19981208
  10. KONAKION [Suspect]
     Active Substance: PHYTONADIONE
     Dosage: 10 MG
     Route: 042
     Dates: start: 19981112
  11. MTX [Concomitant]
     Active Substance: METHOTREXATE SODIUM
     Indication: BONE MARROW TRANSPLANT
     Dosage: 10 MG, UNK
     Route: 042
     Dates: start: 19981111, end: 19981111
  12. AMINOPLASMAL [Concomitant]
     Active Substance: AMINO ACIDS, SOURCE UNSPECIFIED
     Indication: PRODUCT USED FOR UNKNOWN INDICATION
     Dosage: INTERMITTENT THERAPY.
     Route: 042
  13. ZOVIRAX [Concomitant]
     Active Substance: ACYCLOVIR
     Indication: PROPHYLAXIS
     Dosage: 500 MG, UNK
     Route: 042
     Dates: end: 19981122
  14. CLONT [Concomitant]
     Indication: INFECTION
     Dosage: 500 MG, UNK
     Route: 042
  15. PREDNISOLONE. [Suspect]
     Active Substance: PREDNISOLONE
     Dosage: UNK
     Route: 061
     Dates: start: 19981207, end: 19990101
  16. CIPROBAY (CIPROFLOXACIN) [Suspect]
     Active Substance: CIPROFLOXACIN
     Indication: CYSTITIS
     Dosage: 400 MG, UNK
     Route: 042
     Dates: start: 19981130, end: 19990101
  17. AMBISOME [Suspect]
     Active Substance: AMPHOTERICIN B
     Indication: FUNGAL INFECTION
     Dosage: UNK
     Route: 042
     Dates: start: 19981122, end: 19990101
  18. CALCIUM [Concomitant]
     Active Substance: CALCIUM
     Indication: BLOOD CALCIUM DECREASED
     Dosage: UNK
     Route: 042
  19. AMPHO-MORONAL [Concomitant]
     Active Substance: AMPHOTERICIN B
     Dosage: 4 ML, UNK
     Route: 055
     Dates: start: 19981111
  20. PROSTAVASIN [Concomitant]
     Active Substance: ALPROSTADIL ALFADEX
     Indication: CARDIOVASCULAR DISORDER
     Dosage: 500 G, UNK
     Route: 042
     Dates: start: 19981111, end: 19981119
  21. GRANOCYTE [Concomitant]
     Active Substance: LENOGRASTIM
     Indication: BONE MARROW TRANSPLANT
     Dosage: UNK
     Route: 042
     Dates: end: 19981128
  22. VANCOMYCIN [Concomitant]
     Active Substance: VANCOMYCIN
     Indication: INFECTION
     Dosage: 0.5 G, UNK (INTERMITTENT THERAPY)
     Route: 042
     Dates: start: 19981111
  23. NEUPOGEN [Suspect]
     Active Substance: FILGRASTIM
     Indication: BONE MARROW TRANSPLANT
     Dosage: 480 UG, UNK
     Route: 042
     Dates: start: 19981127, end: 19981130
  24. BACTRIM [Suspect]
     Active Substance: SULFAMETHOXAZOLE\TRIMETHOPRIM
     Dosage: 160 MG, UNK
     Route: 042
     Dates: start: 19981204, end: 19981206
  25. KONAKION [Suspect]
     Active Substance: PHYTONADIONE
     Indication: COAGULOPATHY
     Dosage: UNK (IRREGULAR/UNKNOWN DOSING)
     Route: 042
     Dates: start: 19981123, end: 19981207
  26. DIFLUCAN [Suspect]
     Active Substance: FLUCONAZOLE
     Indication: ANTIFUNGAL PROPHYLAXIS
     Dosage: 200 MG, UNK
     Route: 042
     Dates: end: 19981119
  27. GLUCOSE [Concomitant]
     Active Substance: DEXTROSE
     Indication: PARENTERAL NUTRITION
     Dosage: 10, 40 OR 70% SOLUTIONS.
     Route: 042
  28. SODIUM HYDROGEN CARBONATE [Concomitant]
     Active Substance: SODIUM BICARBONATE
     Indication: ACIDOSIS
     Dosage: UNK (INTERMITTENT THERAPY)
     Route: 042
     Dates: start: 19981201, end: 19981206
  29. AMPHOTERICIN B. [Concomitant]
     Active Substance: AMPHOTERICIN B
     Indication: FUNGAL INFECTION
     Dosage: UNK (LEVEL 1/DAY.)
     Route: 042
     Dates: start: 19981117, end: 19981121
  30. REMERGIL [Suspect]
     Active Substance: MIRTAZAPINE
     Indication: DEPRESSION
     Dosage: 15 MG, UNK
     Route: 048
     Dates: start: 19981126, end: 19981130
  31. FUROSEMIDE. [Suspect]
     Active Substance: FUROSEMIDE
     Dosage: 10 MG, UNK
     Route: 042
     Dates: start: 19981202, end: 19981203
  32. NOVALGIN (METAMIZOLE SODIUM) [Suspect]
     Active Substance: METAMIZOLE SODIUM
     Indication: PRODUCT USED FOR UNKNOWN INDICATION
     Dosage: 1 G, UNK
     Route: 042
     Dates: start: 19981111, end: 19981121
  33. NOVALGIN (METAMIZOLE SODIUM) [Suspect]
     Active Substance: METAMIZOLE SODIUM
     Dosage: 1 G, UNK
     Route: 042
     Dates: start: 19981205, end: 19981205
  34. ZIENAM [Suspect]
     Active Substance: CILASTATIN SODIUM\IMIPENEM
     Dosage: 500 MG, UNK
     Route: 042
     Dates: start: 19981121, end: 19981128
  35. CANDIO-HERMAL [Concomitant]
     Active Substance: NYSTATIN
     Indication: CANDIDA INFECTION
     Dosage: UNK
     Route: 061
     Dates: start: 19981204, end: 19981204
  36. MAGNESIUM [Concomitant]
     Active Substance: MAGNESIUM
     Indication: BLOOD MAGNESIUM DECREASED
     Dosage: INTERMITTENT THERAPY.
     Route: 042
     Dates: end: 19981202
  37. SOLU-DECORTIN [Concomitant]
     Active Substance: PREDNISOLONE SODIUM SUCCINATE
     Indication: GRAFT VERSUS HOST DISEASE
     Dosage: 25 MG, UNK
     Route: 042
     Dates: start: 19981119, end: 19981121
  38. GENTAMICIN UNK [Suspect]
     Active Substance: GENTAMICIN
     Indication: CONJUNCTIVITIS
     Dosage: 2 GTT, BID
     Route: 047
     Dates: start: 19981129, end: 19981129
  39. FORTUM [Suspect]
     Active Substance: CEFTAZIDIME
     Indication: INFECTION
     Dosage: 2 G, UNK
     Route: 042
     Dates: start: 19981111, end: 19981120
  40. AMPHO-MORONAL [Concomitant]
     Active Substance: AMPHOTERICIN B
     Indication: ANTIFUNGAL PROPHYLAXIS
     Dosage: 4 ML, UNK
     Route: 048
  41. SOLU-DECORTIN H [Concomitant]
     Indication: GRAFT VERSUS HOST DISEASE
     Dosage: 25 MG, UNK
     Route: 042
     Dates: start: 19981119, end: 19981121
  42. SODIUM CHLORIDE. [Concomitant]
     Active Substance: SODIUM CHLORIDE
     Indication: HYPONATRAEMIA
     Dosage: UNK
     Route: 042
     Dates: start: 19981113
  43. BACTRIM [Suspect]
     Active Substance: SULFAMETHOXAZOLE\TRIMETHOPRIM
     Indication: PRODUCT USED FOR UNKNOWN INDICATION
     Dosage: 160 MG, UNK
     Route: 042
     Dates: start: 19981113, end: 19981120
  44. NOVALGIN (METAMIZOLE SODIUM) [Suspect]
     Active Substance: METAMIZOLE SODIUM
     Dosage: 1 G, UNK
     Route: 042
     Dates: start: 19981208
  45. ZIENAM [Suspect]
     Active Substance: CILASTATIN SODIUM\IMIPENEM
     Indication: INFECTION
     Dosage: 500 MG, UNK
     Route: 042
     Dates: start: 19981205, end: 19990101
  46. CYMEVAN [Suspect]
     Active Substance: GANCICLOVIR
     Indication: PRODUCT USED FOR UNKNOWN INDICATION
     Dosage: 225 MG, UNK
     Route: 042
     Dates: start: 19981127, end: 19990101
  47. VITAMINS NOS [Concomitant]
     Active Substance: VITAMINS
     Indication: PRODUCT USED FOR UNKNOWN INDICATION
     Dosage: UNK
     Route: 042
  48. DOLANTIN [Concomitant]
     Active Substance: MEPERIDINE
     Indication: SEDATION
     Dosage: 50 MG, UNK (INTERMITTENT THERAPY)
     Route: 042
     Dates: start: 19981111, end: 19981121
  49. PENTAGLOBIN [Concomitant]
     Active Substance: HUMAN IMMUNOGLOBULIN G
     Indication: BONE MARROW TRANSPLANT
     Dosage: 20 G, UNK (GIVEN ON 15, 19, 26 NOV ONLY)
     Route: 042
     Dates: start: 19981115, end: 19981126
  50. SANDIMMUN [Concomitant]
     Active Substance: CYCLOSPORINE
     Indication: BONE MARROW TRANSPLANT
     Dosage: UNK
     Route: 042
  51. FUROSEMIDE. [Suspect]
     Active Substance: FUROSEMIDE
     Dosage: 10 MG, UNK
     Route: 042
     Dates: start: 19981205, end: 19981205
  52. TAVOR (LORAZEPAM) [Suspect]
     Active Substance: LORAZEPAM
     Indication: SEDATION
     Dosage: 1 MG, UNK
     Route: 042
     Dates: end: 19981125
  53. BACTRIM [Suspect]
     Active Substance: SULFAMETHOXAZOLE\TRIMETHOPRIM
     Dosage: 160 MG, UNK
     Route: 042
     Dates: start: 19981127, end: 19981129
  54. RESONIUM A [Suspect]
     Active Substance: SODIUM POLYSTYRENE SULFONATE
     Indication: HYPERKALAEMIA
     Dosage: 30 G, QD
     Route: 048
     Dates: start: 19981129, end: 19981129
  55. FORTUM [Suspect]
     Active Substance: CEFTAZIDIME
     Dosage: 2 G, UNK
     Route: 042
     Dates: start: 19981126, end: 19981205
  56. TOBRAMYCIN. [Suspect]
     Active Substance: TOBRAMYCIN
     Indication: INFECTION
     Dosage: 520 MG, UNK
     Route: 042
     Dates: start: 19981121, end: 19981121
  57. AMPHO-MORONAL [Concomitant]
     Active Substance: AMPHOTERICIN B
     Dosage: 4 ML, UNK
     Route: 048
     Dates: end: 19981110
  58. DIPEPTAMIN [Concomitant]
     Indication: PARENTERAL NUTRITION
     Dosage: INTERMITTENT THERAPY
     Route: 042
     Dates: end: 19981128
  59. INZOLEN [Concomitant]
     Active Substance: MAGNESIUM ASPARTATE\POTASSIUM ASPARTATE
     Indication: ELECTROLYTE SUBSTITUTION THERAPY
     Dosage: UNK
     Route: 042
  60. KALIUMCHLORID [Concomitant]
     Active Substance: POTASSIUM CHLORIDE
     Indication: HYPOKALAEMIA
     Dosage: INTERMITTENT THERAPY.
     Route: 042
  61. PEPDUL [Concomitant]
     Active Substance: FAMOTIDINE
     Indication: PROPHYLAXIS
     Dosage: 40 MG, UNK
     Route: 042
     Dates: end: 19981110
  62. VOMEX A [Suspect]
     Active Substance: DIMENHYDRINATE
     Indication: NAUSEA
     Dosage: UNK
     Route: 042
     Dates: start: 19981118, end: 19981130
  63. FUROSEMIDE. [Suspect]
     Active Substance: FUROSEMIDE
     Indication: OEDEMA
     Dosage: 10 MG, UNK
     Route: 042
     Dates: start: 19981013, end: 19981029
  64. NOVALGIN (METAMIZOLE SODIUM) [Suspect]
     Active Substance: METAMIZOLE SODIUM
     Dosage: 1 G, UNK
     Route: 042
     Dates: start: 19981124, end: 19981128
  65. LASIX [Suspect]
     Active Substance: FUROSEMIDE
     Indication: OEDEMA
     Dosage: 40 MG, UNK
     Route: 042
     Dates: start: 19981126, end: 19981126

REACTIONS (2)
  - Toxic epidermal necrolysis [Fatal]
  - Graft versus host disease [Fatal]

NARRATIVE: CASE EVENT DATE: 19981121
